FAERS Safety Report 10864825 (Version 1)
Quarter: 2015Q1

REPORT INFORMATION
  Report Type: Report from Study
  Country: US (occurrence: US)
  Receive Date: 20150224
  Receipt Date: 20150224
  Transmission Date: 20150721
  Serious: Yes (Other)
  Sender: FDA-Public Use
  Company Number: US-ABBVIE-15P-163-1349909-00

PATIENT
  Sex: Female

DRUGS (1)
  1. SYNTHROID [Suspect]
     Active Substance: LEVOTHYROXINE SODIUM
     Indication: HYPOTHYROIDISM
     Route: 048
     Dates: start: 200507

REACTIONS (3)
  - Weight decreased [Not Recovered/Not Resolved]
  - Gastrectomy [Recovered/Resolved]
  - Ileectomy [Recovered/Resolved]

NARRATIVE: CASE EVENT DATE: 201501
